FAERS Safety Report 10705317 (Version 3)
Quarter: 2015Q1

REPORT INFORMATION
  Report Type: Spontaneous
  Country: DE (occurrence: DE)
  Receive Date: 20150112
  Receipt Date: 20150130
  Transmission Date: 20150721
  Serious: Yes (Other)
  Sender: FDA-Public Use
  Company Number: DE-BAYER-2014-054374

PATIENT
  Age: 31 Year
  Sex: Female
  Weight: 67 kg

DRUGS (1)
  1. MIRENA [Suspect]
     Active Substance: LEVONORGESTREL
     Indication: CONTRACEPTION
     Dosage: 20 MCG/24HR, CONT
     Route: 015
     Dates: start: 201012

REACTIONS (10)
  - Haemorrhage in pregnancy [Recovered/Resolved]
  - Drug ineffective [None]
  - Endometritis decidual [None]
  - Abortion spontaneous [Recovered/Resolved]
  - Nausea [Recovered/Resolved]
  - Ovarian cyst [None]
  - Inflammation [None]
  - Cervical friability [None]
  - Pregnancy with contraceptive device [Recovered/Resolved]
  - Vaginitis bacterial [None]

NARRATIVE: CASE EVENT DATE: 20131205
